FAERS Safety Report 17420356 (Version 3)
Quarter: 2020Q2

REPORT INFORMATION
  Report Type: Spontaneous
  Country: US (occurrence: US)
  Receive Date: 20200214
  Receipt Date: 20200414
  Transmission Date: 20200713
  Serious: No
  Sender: FDA-Public Use
  Company Number: US-VERTEX PHARMACEUTICALS-2020-002678

PATIENT
  Age: 17 Year
  Sex: Female
  Weight: 49.89 kg

DRUGS (1)
  1. TRIKAFTA [Suspect]
     Active Substance: ELEXACAFTOR\IVACAFTOR\TEZACAFTOR
     Indication: CYSTIC FIBROSIS
     Dosage: 100MG ELEXACAFTOR/50MG TEZACAFTOR/75MG IVACAFTOR AM AND 150MG IVACAFTOR PM, BID
     Route: 048
     Dates: start: 20200109

REACTIONS (3)
  - Nausea [Unknown]
  - Dizziness [Not Recovered/Not Resolved]
  - Sputum increased [Unknown]

NARRATIVE: CASE EVENT DATE: 20200109
